FAERS Safety Report 9964714 (Version 14)
Quarter: 2014Q2

REPORT INFORMATION
  Report Type: Spontaneous
  Country: US (occurrence: US)
  Receive Date: 20140305
  Receipt Date: 20140609
  Transmission Date: 20141212
  Serious: No
  Sender: FDA-Public Use
  Company Number: US-VERTEX PHARMACEUTICALS INC-2014-001108

PATIENT
  Age: 52 Year
  Sex: Female
  Weight: 84.35 kg

DRUGS (8)
  1. INCIVEK [Suspect]
     Indication: HEPATITIS C
     Dosage: 750 MG, TID
     Route: 048
     Dates: start: 20140228, end: 20140525
  2. RIBAVIRIN [Suspect]
     Indication: HEPATITIS C
     Dosage: 2 IN AM, 3 IN PM
     Route: 048
     Dates: start: 20140228, end: 201403
  3. RIBAVIRIN [Suspect]
     Dosage: 2 IN AM, 3 IN PM
     Route: 048
     Dates: start: 20140409
  4. PEGASYS [Suspect]
     Indication: HEPATITIS C
     Dosage: 180 ?G, QW
     Route: 058
     Dates: start: 20140228, end: 20140328
  5. PEGASYS [Suspect]
     Dosage: 180 ?G, QW
     Route: 058
     Dates: start: 20140409
  6. CLARITONE [Concomitant]
     Indication: HYPERSENSITIVITY
     Route: 048
  7. SYMBICORT [Concomitant]
     Indication: CHRONIC OBSTRUCTIVE PULMONARY DISEASE
     Dosage: 1 PUFF, BID
     Route: 048
  8. FLEXERIL [Concomitant]
     Indication: MUSCLE SPASMS
     Route: 048

REACTIONS (52)
  - Foot fracture [Not Recovered/Not Resolved]
  - Bipolar disorder [Not Recovered/Not Resolved]
  - Mania [Not Recovered/Not Resolved]
  - Hallucination [Not Recovered/Not Resolved]
  - Panic attack [Recovered/Resolved]
  - Lethargy [Not Recovered/Not Resolved]
  - Dyspnoea [Not Recovered/Not Resolved]
  - Dizziness [Not Recovered/Not Resolved]
  - Influenza like illness [Not Recovered/Not Resolved]
  - Pyrexia [Recovered/Resolved]
  - Headache [Recovered/Resolved]
  - Chronic obstructive pulmonary disease [Unknown]
  - Pharyngeal oedema [Not Recovered/Not Resolved]
  - Stomatitis [Recovering/Resolving]
  - Oral pain [Recovering/Resolving]
  - Arthralgia [Not Recovered/Not Resolved]
  - Vulvovaginal burning sensation [Not Recovered/Not Resolved]
  - Rash pruritic [Not Recovered/Not Resolved]
  - Vulvovaginal discomfort [Not Recovered/Not Resolved]
  - Vulvovaginal swelling [Recovered/Resolved]
  - Vaginal haemorrhage [Recovering/Resolving]
  - Vulvovaginal pain [Recovered/Resolved]
  - Oropharyngeal pain [Recovering/Resolving]
  - Ocular hyperaemia [Not Recovered/Not Resolved]
  - Eye irritation [Not Recovered/Not Resolved]
  - Rhinorrhoea [Not Recovered/Not Resolved]
  - Throat irritation [Not Recovered/Not Resolved]
  - Vision blurred [Not Recovered/Not Resolved]
  - Discomfort [Not Recovered/Not Resolved]
  - Hypersensitivity [Unknown]
  - Skin discolouration [Not Recovered/Not Resolved]
  - Nasopharyngitis [Not Recovered/Not Resolved]
  - Blister [Recovered/Resolved]
  - Drug administration error [Recovered/Resolved]
  - Myalgia [Not Recovered/Not Resolved]
  - Memory impairment [Not Recovered/Not Resolved]
  - Contusion [Not Recovered/Not Resolved]
  - Skin scar contracture [Not Recovered/Not Resolved]
  - Eye irritation [Recovered/Resolved]
  - Movement disorder [Not Recovered/Not Resolved]
  - Dyspnoea [Not Recovered/Not Resolved]
  - Musculoskeletal chest pain [Not Recovered/Not Resolved]
  - Dysphonia [Recovered/Resolved]
  - Scratch [Not Recovered/Not Resolved]
  - Scab [Recovering/Resolving]
  - Pulmonary congestion [Not Recovered/Not Resolved]
  - Fatigue [Not Recovered/Not Resolved]
  - Rash [Recovered/Resolved]
  - Nausea [Not Recovered/Not Resolved]
  - Anorectal discomfort [Recovered/Resolved]
  - Rectal haemorrhage [Not Recovered/Not Resolved]
  - Pruritus [Recovering/Resolving]
